FAERS Safety Report 19444387 (Version 1)
Quarter: 2021Q2

REPORT INFORMATION
  Report Type: Spontaneous
  Country: CA (occurrence: CA)
  Receive Date: 20210621
  Receipt Date: 20210621
  Transmission Date: 20210717
  Serious: Yes (Other)
  Sender: FDA-Public Use
  Company Number: CA-CELLTRION INC.-2017CA017595

PATIENT

DRUGS (30)
  1. INFLECTRA [Suspect]
     Active Substance: INFLIXIMAB-DYYB
     Dosage: 300 MG (5 MG/KG), EVERY 0, 2, 6 WEEKS, THEN EVERY 8 WEEKS
     Route: 042
     Dates: start: 20180814
  2. INFLECTRA [Suspect]
     Active Substance: INFLIXIMAB-DYYB
     Dosage: 700 MG, EVERY 8 WEEKS
     Route: 042
     Dates: start: 20200116
  3. INFLECTRA [Suspect]
     Active Substance: INFLIXIMAB-DYYB
     Dosage: 700 MG, EVERY 8 WEEKS
     Route: 042
     Dates: start: 20210128
  4. INFLECTRA [Suspect]
     Active Substance: INFLIXIMAB-DYYB
     Dosage: 700 MG, EVERY 8 WEEKS
     Route: 042
     Dates: start: 20210128
  5. INFLECTRA [Suspect]
     Active Substance: INFLIXIMAB-DYYB
     Dosage: 300 MG (4.72 MG/KG) EVERY 0, 2, 6 WEEKS, THEN EVERY 8 WEEKS
     Route: 042
     Dates: start: 20180208, end: 20181219
  6. INFLECTRA [Suspect]
     Active Substance: INFLIXIMAB-DYYB
     Dosage: 300 MG (4.72 MG/KG) EVERY 0, 2, 6 WEEKS, THEN EVERY 8 WEEKS
     Route: 042
     Dates: start: 20180607
  7. INFLECTRA [Suspect]
     Active Substance: INFLIXIMAB-DYYB
     Dosage: 700 MG, EVERY 8 WEEKS
     Route: 042
     Dates: start: 20191106
  8. INFLECTRA [Suspect]
     Active Substance: INFLIXIMAB-DYYB
     Dosage: 700 MG, EVERY 8 WEEKS
     Route: 042
     Dates: start: 20200923, end: 20201110
  9. INFLECTRA [Suspect]
     Active Substance: INFLIXIMAB-DYYB
     Dosage: 300 MG (4.72 MG/KG) EVERY 0, 2, 6 WEEKS, THEN EVERY 8 WEEKS/WEEK 6 DOSE
     Route: 042
     Dates: start: 20171212, end: 20171212
  10. INFLECTRA [Suspect]
     Active Substance: INFLIXIMAB-DYYB
     Dosage: 300 MG (4.72 MG/KG) EVERY 0, 2, 6 WEEKS, THEN EVERY 8 WEEKS
     Route: 042
     Dates: start: 20180404
  11. INFLECTRA [Suspect]
     Active Substance: INFLIXIMAB-DYYB
     Dosage: 300 MG (5 MG/KG), EVERY 0, 2, 6 WEEKS, THEN EVERY 8 WEEKS
     Route: 042
     Dates: start: 20181023
  12. INFLECTRA [Suspect]
     Active Substance: INFLIXIMAB-DYYB
     Dosage: 700 MG, EVERY 8 WEEKS
     Route: 042
     Dates: start: 20190501
  13. INFLECTRA [Suspect]
     Active Substance: INFLIXIMAB-DYYB
     Dosage: 700 MG, EVERY 8 WEEKS
     Route: 042
     Dates: start: 20200713
  14. INFLECTRA [Suspect]
     Active Substance: INFLIXIMAB-DYYB
     Dosage: 700 MG, EVERY 8 WEEKS
     Route: 042
     Dates: start: 20210407
  15. INFLECTRA [Suspect]
     Active Substance: INFLIXIMAB-DYYB
     Indication: CROHN^S DISEASE
     Dosage: 5 MG/KG, EVERY 0, 2, 6 WEEKS, THEN EVERY 8 WEEKSWEEK 0 DOSE
     Route: 042
     Dates: start: 20171010, end: 20171010
  16. INFLECTRA [Suspect]
     Active Substance: INFLIXIMAB-DYYB
     Dosage: 700 MG, EVERY 8 WEEKS
     Route: 042
     Dates: start: 20200319
  17. PREDNISONE. [Concomitant]
     Active Substance: PREDNISONE
     Dosage: UNK
  18. INFLECTRA [Suspect]
     Active Substance: INFLIXIMAB-DYYB
     Dosage: 700 MG, EVERY 8 WEEKS
     Route: 042
     Dates: start: 20190226
  19. AZATHIOPRINE. [Concomitant]
     Active Substance: AZATHIOPRINE
     Indication: COLITIS
     Dosage: UNK
  20. INFLECTRA [Suspect]
     Active Substance: INFLIXIMAB-DYYB
     Dosage: 5 MG/KG (300MG) 0, 2, 6, WEEKS, THEN EVERY 8 WEEKS
     Route: 042
     Dates: start: 20171010, end: 20171010
  21. INFLECTRA [Suspect]
     Active Substance: INFLIXIMAB-DYYB
     Dosage: 700 MG, EVERY 8 WEEKS
     Route: 042
     Dates: start: 20190906
  22. INFLECTRA [Suspect]
     Active Substance: INFLIXIMAB-DYYB
     Dosage: 700 MG, EVERY 8 WEEKS
     Route: 042
     Dates: start: 20210407
  23. INFLECTRA [Suspect]
     Active Substance: INFLIXIMAB-DYYB
     Dosage: 5 MG/KG (300MG) 0, 2, 6, WEEKS, THEN EVERY 8 WEEKS/WEEK 2 DOSE/4 WEEK
     Route: 042
     Dates: start: 20171024, end: 20171024
  24. INFLECTRA [Suspect]
     Active Substance: INFLIXIMAB-DYYB
     Dosage: 700 MG, EVERY 8 WEEKS
     Route: 042
     Dates: start: 20200511
  25. INFLECTRA [Suspect]
     Active Substance: INFLIXIMAB-DYYB
     Dosage: 700 MG, EVERY 8 WEEKS
     Route: 042
     Dates: start: 20201116
  26. FLAGYL [Concomitant]
     Active Substance: METRONIDAZOLE\METRONIDAZOLE HYDROCHLORIDE
     Dosage: UNK
  27. SALOFALK [Concomitant]
     Dosage: UNK
  28. INFLECTRA [Suspect]
     Active Substance: INFLIXIMAB-DYYB
     Dosage: 300 MG (5 MG/KG), EVERY 0, 2, 6 WEEKS, THEN EVERY 8 WEEKS
     Route: 042
     Dates: start: 20181219
  29. INFLECTRA [Suspect]
     Active Substance: INFLIXIMAB-DYYB
     Dosage: 700 MG, EVERY 8 WEEKS300 MG (5 MG/KG), EVERY 0, 2, 6 WEEKS, THEN EVERY 8 WEEKS
     Route: 042
     Dates: start: 20210128
  30. METHOTREXATE. [Concomitant]
     Active Substance: METHOTREXATE
     Dosage: 12.5 MG, UNK
     Dates: start: 201709, end: 20180117

REACTIONS (36)
  - Pyrexia [Recovered/Resolved]
  - Headache [Not Recovered/Not Resolved]
  - Oropharyngeal pain [Not Recovered/Not Resolved]
  - Influenza [Recovering/Resolving]
  - Hypoaesthesia [Unknown]
  - Malaise [Unknown]
  - Nasal congestion [Not Recovered/Not Resolved]
  - Off label use [Unknown]
  - Urinary tract infection [Recovered/Resolved]
  - Therapeutic response shortened [Unknown]
  - Intentional product use issue [Unknown]
  - Dyspepsia [Unknown]
  - Hypersensitivity [Recovering/Resolving]
  - Stress [Unknown]
  - Hyperthermia [Recovered/Resolved]
  - Urinary tract infection [Unknown]
  - Diarrhoea [Not Recovered/Not Resolved]
  - Eating disorder [Not Recovered/Not Resolved]
  - Off label use [Unknown]
  - Dyspnoea [Not Recovered/Not Resolved]
  - Rhinorrhoea [Not Recovered/Not Resolved]
  - Electric shock sensation [Unknown]
  - Vaginal infection [Not Recovered/Not Resolved]
  - Blood pressure increased [Unknown]
  - Nausea [Unknown]
  - Acne [Not Recovered/Not Resolved]
  - Productive cough [Not Recovered/Not Resolved]
  - Nasopharyngitis [Not Recovered/Not Resolved]
  - Vertigo [Unknown]
  - Vomiting [Recovered/Resolved]
  - Tension [Not Recovered/Not Resolved]
  - Therapeutic response unexpected [Unknown]
  - Inappropriate schedule of product administration [Unknown]
  - Fatigue [Not Recovered/Not Resolved]
  - Eye pruritus [Recovering/Resolving]
  - Influenza like illness [Unknown]

NARRATIVE: CASE EVENT DATE: 20180806
